FAERS Safety Report 9730364 (Version 2)
Quarter: 2014Q1

REPORT INFORMATION
  Report Type: Spontaneous
  Country: FR (occurrence: FR)
  Receive Date: 20131204
  Receipt Date: 20140118
  Transmission Date: 20141002
  Serious: Yes (Other)
  Sender: FDA-Public Use
  Company Number: FR-ROCHE-1312519

PATIENT
  Age: 66 Year
  Sex: Male
  Weight: 76.5 kg

DRUGS (13)
  1. MIRCERA [Suspect]
     Indication: NEPHROGENIC ANAEMIA
     Dosage: 150 UG
     Route: 042
     Dates: start: 20130819
  2. MIRCERA [Suspect]
     Route: 065
     Dates: start: 20130906
  3. MIRCERA [Suspect]
     Route: 065
     Dates: start: 20130920
  4. MIRCERA [Suspect]
     Route: 065
     Dates: start: 20131004
  5. MIRCERA [Suspect]
     Route: 065
     Dates: start: 20131018
  6. MIRCERA [Suspect]
     Dosage: 120 UG
     Route: 042
     Dates: start: 20131101, end: 20131115
  7. UVEDOSE [Concomitant]
  8. BISOCE [Concomitant]
  9. ALPRAZOLAM [Concomitant]
  10. PANTOPRAZOLE [Concomitant]
  11. KARDEGIC [Concomitant]
  12. SEROPRAM (FRANCE) [Concomitant]
  13. XATRAL [Concomitant]

REACTIONS (2)
  - Pelvic venous thrombosis [Unknown]
  - Fibrin D dimer increased [Unknown]
